FAERS Safety Report 5185308-7 (Version None)
Quarter: 2006Q4

REPORT INFORMATION
  Report Type: 
  Country: None (occurrence: None)
  Receive Date: 20061220
  Receipt Date: 20060907
  Transmission Date: 20070319
  Serious: Yes (Hospitalization)
  Sender: FDA-Public Use
  Company Number: FR-ELI_LILLY_AND_COMPANY-FR200609001743

PATIENT
  Age: 76 Year
  Sex: Female

DRUGS (9)
  1. DRIPTANE [Concomitant]
     Route: 048
  2. SULFARLEM [Concomitant]
     Route: 048
  3. CACIT D3 [Concomitant]
     Route: 048
  4. IMOVANE [Concomitant]
     Route: 048
  5. OMEPRAZOLE [Concomitant]
     Route: 048
  6. FORTEO [Suspect]
     Indication: OSTEOPOROSIS
     Dosage: 20 UG, DAILY (1/D)
     Route: 058
     Dates: start: 20060313
  7. DIAMICRON [Concomitant]
     Indication: DIABETES MELLITUS NON-INSULIN-DEPENDENT
     Route: 048
  8. FENOFIBRATE [Concomitant]
     Indication: HYPERLIPIDAEMIA
     Route: 048
  9. EFFERALGAN CODEINE [Concomitant]
     Indication: PAIN

REACTIONS (3)
  - PULMONARY EMBOLISM [None]
  - SEPSIS [None]
  - THROMBOPHLEBITIS [None]
